FAERS Safety Report 14248319 (Version 1)
Quarter: 2017Q4

REPORT INFORMATION
  Report Type: Spontaneous
  Country: US (occurrence: US)
  Receive Date: 20171202
  Receipt Date: 20171202
  Transmission Date: 20180321
  Serious: Yes (Life-Threatening)
  Sender: FDA-Public Use
  Company Number: None

PATIENT
  Sex: Female
  Weight: 54 kg

DRUGS (6)
  1. SULFAMETHOXAZOLE/TRIMETHOPRIM DS [Suspect]
     Active Substance: SULFAMETHOXAZOLE\TRIMETHOPRIM
     Indication: URINARY TRACT INFECTION
     Dosage: ?          QUANTITY:1 TABLET(S);?
     Route: 048
     Dates: start: 20171120, end: 20171121
  2. IBUPROFEN. [Concomitant]
     Active Substance: IBUPROFEN
  3. SULFAMETHOXAZOLE/TRIMETHOPRIM DS [Suspect]
     Active Substance: SULFAMETHOXAZOLE\TRIMETHOPRIM
     Indication: SINUSITIS
     Dosage: ?          QUANTITY:1 TABLET(S);?
     Route: 048
     Dates: start: 20171120, end: 20171121
  4. ATORSVASTATIN [Concomitant]
  5. SULFAMETHOXAZOLE/TRIMETHOPRIM DS [Suspect]
     Active Substance: SULFAMETHOXAZOLE\TRIMETHOPRIM
     Indication: EAR INFECTION
     Dosage: ?          QUANTITY:1 TABLET(S);?
     Route: 048
     Dates: start: 20171120, end: 20171121
  6. ASPIRIN. [Concomitant]
     Active Substance: ASPIRIN

REACTIONS (19)
  - Hypersensitivity [None]
  - Pruritus [None]
  - Skin warm [None]
  - Dizziness [None]
  - Anaphylactic reaction [None]
  - Burning sensation [None]
  - Vasculitis [None]
  - Urticaria [None]
  - Ocular hyperaemia [None]
  - Oedema peripheral [None]
  - Erythema [None]
  - Diarrhoea [None]
  - Pain [None]
  - Drug ineffective [None]
  - Throat irritation [None]
  - Eye pain [None]
  - Inflammation [None]
  - Eye oedema [None]
  - Headache [None]

NARRATIVE: CASE EVENT DATE: 20171120
